FAERS Safety Report 22857673 (Version 3)
Quarter: 2023Q4

REPORT INFORMATION
  Report Type: Report from Study
  Country: US (occurrence: US)
  Receive Date: 20230823
  Receipt Date: 20231104
  Transmission Date: 20240110
  Serious: No
  Sender: FDA-Public Use
  Company Number: US-002147023-NVSC2023US182632

PATIENT
  Sex: Male

DRUGS (1)
  1. PROMACTA [Suspect]
     Active Substance: ELTROMBOPAG OLAMINE
     Indication: Immune thrombocytopenia
     Dosage: UNK
     Route: 065

REACTIONS (6)
  - Pain in jaw [Unknown]
  - Gingival pain [Unknown]
  - Platelet count abnormal [Unknown]
  - Arthritis [Unknown]
  - Arthralgia [Unknown]
  - Oropharyngeal pain [Unknown]
